FAERS Safety Report 7321551-6 (Version None)
Quarter: 2011Q1

REPORT INFORMATION
  Report Type: 
  Country: None (occurrence: None)
  Receive Date: 20110228
  Receipt Date: 20100411
  Transmission Date: 20110831
  Serious: No
  Sender: FDA-Public Use
  Company Number: A0854679A

PATIENT
  Sex: Female

DRUGS (1)
  1. VALACYCLOVIR [Suspect]
     Dosage: 500MG PER DAY
     Route: 065
     Dates: start: 20100101

REACTIONS (3)
  - GROIN PAIN [None]
  - DRUG INEFFECTIVE [None]
  - HERPES ZOSTER [None]
